FAERS Safety Report 19157573 (Version 1)
Quarter: 2021Q2

REPORT INFORMATION
  Report Type: Spontaneous
  Country: SE (occurrence: SE)
  Receive Date: 20210420
  Receipt Date: 20210420
  Transmission Date: 20210717
  Serious: Yes (Hospitalization)
  Sender: FDA-Public Use
  Company Number: SE-ASTRAZENECA-2021A306065

PATIENT
  Age: 75 Year
  Sex: Female
  Weight: 91 kg

DRUGS (1)
  1. BRILIQUE [Suspect]
     Active Substance: TICAGRELOR
     Indication: CEREBRAL ENDOVASCULAR ANEURYSM REPAIR
     Route: 048
     Dates: start: 20210303, end: 20210326

REACTIONS (4)
  - Dizziness [Recovered/Resolved with Sequelae]
  - Atrial tachycardia [Recovered/Resolved with Sequelae]
  - Dyspnoea [Recovered/Resolved with Sequelae]
  - Supraventricular extrasystoles [Recovered/Resolved with Sequelae]

NARRATIVE: CASE EVENT DATE: 20210306
